FAERS Safety Report 24545740 (Version 3)
Quarter: 2024Q4

REPORT INFORMATION
  Report Type: Report from Study
  Country: US (occurrence: US)
  Receive Date: 20241024
  Receipt Date: 20241029
  Transmission Date: 20250115
  Serious: Yes (Hospitalization)
  Sender: ABBVIE
  Company Number: US-ABBVIE-5974028

PATIENT
  Age: 42 Year
  Sex: Male
  Weight: 70 kg

DRUGS (2)
  1. SKYRIZI [Suspect]
     Active Substance: RISANKIZUMAB-RZAA
     Indication: Psoriasis
     Dosage: FORM STRENGTH: 150 MILLIGRAM/MILLILITERS
     Route: 058
  2. SKYRIZI [Suspect]
     Active Substance: RISANKIZUMAB-RZAA
     Dosage: DOSAGE: 150 MG/ML FORM STRENGTH: 150 MILLIGRAM/MILLILITERS
     Route: 058
     Dates: start: 2022

REACTIONS (9)
  - Accident at work [Recovering/Resolving]
  - Arthralgia [Recovered/Resolved]
  - Vision blurred [Not Recovered/Not Resolved]
  - Fall [Recovering/Resolving]
  - Head injury [Unknown]
  - Dizziness [Not Recovered/Not Resolved]
  - Back injury [Unknown]
  - Joint injury [Unknown]
  - Corrective lens user [Unknown]

NARRATIVE: CASE EVENT DATE: 20241016
